FAERS Safety Report 24823240 (Version 2)
Quarter: 2025Q2

REPORT INFORMATION
  Report Type: Report from Study
  Country: US (occurrence: US)
  Receive Date: 20250109
  Receipt Date: 20250520
  Transmission Date: 20250717
  Serious: No
  Sender: SUNOVION
  Company Number: US-SUMITOMO PHARMA SWITZERLAND GMBH-2024SPA003810

PATIENT

DRUGS (2)
  1. ORGOVYX [Suspect]
     Active Substance: RELUGOLIX
     Indication: Prostate cancer
     Route: 048
  2. ORGOVYX [Suspect]
     Active Substance: RELUGOLIX
     Dosage: 120 MG, QD (MAINTAINANCE DOSE TAKEN WITH BIOLOGICS)
     Route: 048
     Dates: start: 20240923

REACTIONS (6)
  - Platelet count decreased [Unknown]
  - Paraesthesia [Unknown]
  - Muscle spasms [Unknown]
  - Peripheral coldness [Unknown]
  - Hot flush [Unknown]
  - Fatigue [Unknown]
